FAERS Safety Report 19738206 (Version 1)
Quarter: 2021Q3

REPORT INFORMATION
  Report Type: Spontaneous
  Country: US (occurrence: US)
  Receive Date: 20210824
  Receipt Date: 20210824
  Transmission Date: 20211014
  Serious: No
  Sender: FDA-Public Use
  Company Number: US-ALXN-A202109342

PATIENT
  Sex: Female

DRUGS (1)
  1. STRENSIQ [Suspect]
     Active Substance: ASFOTASE ALFA
     Indication: HYPOPHOSPHATASIA
     Route: 065

REACTIONS (5)
  - Nausea [Unknown]
  - Headache [Unknown]
  - Burning sensation [Unknown]
  - Hypersensitivity [Unknown]
  - Pain in extremity [Unknown]
